FAERS Safety Report 10357098 (Version 3)
Quarter: 2015Q1

REPORT INFORMATION
  Report Type: Spontaneous
  Country: JP (occurrence: JP)
  Receive Date: 20140801
  Receipt Date: 20150226
  Transmission Date: 20150720
  Serious: Yes (Hospitalization, Other)
  Sender: FDA-Public Use
  Company Number: JP-PFIZER INC-2014210000

PATIENT
  Age: 9 Year
  Sex: Male
  Weight: 25.6 kg

DRUGS (1)
  1. GENOTROPIN TC [Suspect]
     Active Substance: SOMATROPIN
     Indication: GROWTH HORMONE DEFICIENCY
     Dosage: UNK
     Route: 058
     Dates: start: 2007

REACTIONS (2)
  - Ligament sprain [Unknown]
  - Osteochondrosis [Unknown]

NARRATIVE: CASE EVENT DATE: 20140421
